FAERS Safety Report 17128771 (Version 1)
Quarter: 2019Q4

REPORT INFORMATION
  Report Type: Spontaneous
  Country: JP (occurrence: JP)
  Receive Date: 20191209
  Receipt Date: 20191209
  Transmission Date: 20200122
  Serious: Yes (Death, Hospitalization, Other)
  Sender: FDA-Public Use
  Company Number: JP-PFIZER INC-2019524731

PATIENT
  Age: 70 Year
  Sex: Female

DRUGS (7)
  1. ESOMEPRAZOLE MAGNESIUM. [Concomitant]
     Active Substance: ESOMEPRAZOLE MAGNESIUM
     Route: 048
  2. ALFACALCIDOL [Concomitant]
     Active Substance: ALFACALCIDOL
     Route: 048
  3. CLONAZEPAM. [Concomitant]
     Active Substance: CLONAZEPAM
     Route: 048
  4. METHYLPREDNISOLONE. [Suspect]
     Active Substance: METHYLPREDNISOLONE
     Indication: FIBROMYALGIA
     Route: 048
  5. MIDODRINE HYDROCHLORIDE. [Concomitant]
     Active Substance: MIDODRINE HYDROCHLORIDE
     Route: 048
  6. VITAMIN B [Concomitant]
     Active Substance: VITAMIN B
     Route: 048
  7. MIZORIBINE [Concomitant]
     Active Substance: MIZORIBINE
     Route: 048

REACTIONS (3)
  - Aeromonas infection [Fatal]
  - Sepsis [Fatal]
  - Immunodeficiency [Unknown]
